FAERS Safety Report 6617508-0 (Version None)
Quarter: 2010Q1

REPORT INFORMATION
  Report Type: 
  Country: None (occurrence: None)
  Receive Date: 20100308
  Receipt Date: 20100303
  Transmission Date: 20100710
  Serious: Yes (Other)
  Sender: FDA-Public Use
  Company Number: IN-ROXANE LABORATORIES, INC.-2010-RO-00228RO

PATIENT
  Age: 17 Year
  Sex: Female

DRUGS (4)
  1. MYCOPHENOLATE MOFETIL [Suspect]
     Dosage: 1000 MG
  2. MYCOPHENOLATE MOFETIL [Suspect]
     Dosage: 2000 MG
  3. AZATHIOPRINE [Suspect]
  4. VALPROATE SODIUM [Suspect]
     Indication: CONVULSION
     Dates: end: 20060801

REACTIONS (1)
  - DRUG INTERACTION [None]
